FAERS Safety Report 5087224-8 (Version None)
Quarter: 2006Q3

REPORT INFORMATION
  Report Type: 
  Country: None (occurrence: None)
  Receive Date: 20060821
  Receipt Date: 20060808
  Transmission Date: 20061208
  Serious: Yes (Other)
  Sender: FDA-Public Use
  Company Number: B0434445A

PATIENT
  Age: 44 Year
  Sex: Female

DRUGS (3)
  1. EPIVIR [Suspect]
     Indication: DRUG USE FOR UNKNOWN INDICATION
  2. NELFINAVIR MESYLATE (NELFINAVIR MESYLATE) [Suspect]
     Indication: DRUG USE FOR UNKNOWN INDICATION
  3. STAVUDINE [Suspect]
     Indication: DRUG USE FOR UNKNOWN INDICATION

REACTIONS (4)
  - IMMUNE RECONSTITUTION SYNDROME [None]
  - PNEUMONITIS CRYPTOCOCCAL [None]
  - UVEITIS [None]
  - VITREOUS DISORDER [None]
